FAERS Safety Report 24971766 (Version 3)
Quarter: 2025Q1

REPORT INFORMATION
  Report Type: Spontaneous
  Country: IT (occurrence: IT)
  Receive Date: 20250214
  Receipt Date: 20250311
  Transmission Date: 20250409
  Serious: Yes (Life-Threatening, Hospitalization, Other)
  Sender: PFIZER
  Company Number: None

PATIENT
  Age: 46 Year
  Sex: Female

DRUGS (3)
  1. LORAZEPAM [Suspect]
     Active Substance: LORAZEPAM
     Route: 048
     Dates: start: 20220430, end: 20220430
  2. TACHIPIRINA [Suspect]
     Active Substance: ACETAMINOPHEN
     Route: 048
     Dates: start: 20220430, end: 20220430
  3. DISULFIRAM [Suspect]
     Active Substance: DISULFIRAM
     Route: 048
     Dates: start: 20220430, end: 20220430

REACTIONS (7)
  - Drug abuse [Recovered/Resolved]
  - Overdose [Recovered/Resolved]
  - Intentional self-injury [Recovered/Resolved]
  - Vomiting [Not Recovered/Not Resolved]
  - Psychomotor hyperactivity [Recovered/Resolved]
  - Respiratory alkalosis [Recovered/Resolved]
  - Alanine aminotransferase increased [Recovered/Resolved]

NARRATIVE: CASE EVENT DATE: 20220430
